FAERS Safety Report 9456249 (Version 1)
Quarter: 2013Q3

REPORT INFORMATION
  Report Type: Report from Study
  Country: US (occurrence: US)
  Receive Date: 20130813
  Receipt Date: 20130813
  Transmission Date: 20140515
  Serious: Yes (Other)
  Sender: FDA-Public Use
  Company Number: US-BAYER-2013-097504

PATIENT
  Sex: Female

DRUGS (1)
  1. MIRENA [Suspect]
     Dosage: 20 MCG/24HR, CONT
     Route: 015
     Dates: start: 20120817, end: 20120925

REACTIONS (6)
  - Genital haemorrhage [None]
  - Weight increased [None]
  - Discomfort [None]
  - Alopecia [None]
  - Mood swings [None]
  - Menorrhagia [None]
